FAERS Safety Report 6232219-1 (Version None)
Quarter: 2009Q2

REPORT INFORMATION
  Report Type: 
  Country: None (occurrence: None)
  Receive Date: 20090615
  Receipt Date: 20090615
  Transmission Date: 20091009
  Serious: Yes (Hospitalization)
  Sender: FDA-Public Use
  Company Number: None

PATIENT
  Sex: Female

DRUGS (1)
  1. TRILIPIX [Suspect]
     Dosage: 135MG 1X A DAY
     Dates: start: 20090416, end: 20090601

REACTIONS (3)
  - CHEST PAIN [None]
  - DYSPNOEA [None]
  - HEART RATE DECREASED [None]
